FAERS Safety Report 4650832-X (Version None)
Quarter: 2005Q2

REPORT INFORMATION
  Report Type: 
  Country: None (occurrence: None)
  Receive Date: 20050429
  Receipt Date: 20050429
  Transmission Date: 20051028
  Serious: Yes (Death)
  Sender: FDA-Public Use
  Company Number: None

PATIENT
  Age: 39 Year
  Sex: Female
  Weight: 60.3 kg

DRUGS (1)
  1. COUMADIN [Suspect]
     Dosage: NOT STATED

REACTIONS (5)
  - ACUTE RESPIRATORY DISTRESS SYNDROME [None]
  - FEEDING TUBE COMPLICATION [None]
  - HAEMATEMESIS [None]
  - RENAL DISORDER [None]
  - SEPSIS [None]
